FAERS Safety Report 7479170-7 (Version None)
Quarter: 2011Q2

REPORT INFORMATION
  Report Type: 
  Country: None (occurrence: None)
  Receive Date: 20110513
  Receipt Date: 20110509
  Transmission Date: 20111010
  Serious: Yes (Other)
  Sender: FDA-Public Use
  Company Number: GB-BRISTOL-MYERS SQUIBB COMPANY-15736879

PATIENT
  Age: 4 Decade
  Sex: Female

DRUGS (4)
  1. BENDROFLUAZIDE [Concomitant]
     Route: 065
  2. ZUCLOPENTHIXOL [Concomitant]
     Dosage: FORMULATION:DEPOT
     Route: 065
  3. ATENOLOL [Concomitant]
     Route: 065
  4. ABILIFY [Suspect]
     Route: 048

REACTIONS (1)
  - CUSHINGOID [None]
